FAERS Safety Report 5201456-7 (Version None)
Quarter: 2007Q1

REPORT INFORMATION
  Report Type: 
  Country: None (occurrence: None)
  Receive Date: 20070108
  Receipt Date: 20061227
  Transmission Date: 20070707
  Serious: Yes (Death, Hospitalization)
  Sender: FDA-Public Use
  Company Number: FR-SANOFI-SYNTHELABO-A02200700002

PATIENT
  Age: 54 Year
  Sex: Female

DRUGS (3)
  1. ELOXATIN [Suspect]
     Indication: COLON CANCER
     Route: 013
     Dates: start: 20030901, end: 20030901
  2. FLUOROURACIL [Concomitant]
     Dosage: UNK
     Route: 041
     Dates: start: 20030901, end: 20030901
  3. LEUCOVORIN CALCIUM [Concomitant]
     Dosage: UNK
     Route: 041
     Dates: start: 20030901, end: 20030901

REACTIONS (3)
  - ASCITES [None]
  - HEPATORENAL SYNDROME [None]
  - VENOOCCLUSIVE LIVER DISEASE [None]
